FAERS Safety Report 20822649 (Version 5)
Quarter: 2025Q2

REPORT INFORMATION
  Report Type: Spontaneous
  Country: US (occurrence: US)
  Receive Date: 20220512
  Receipt Date: 20250519
  Transmission Date: 20250717
  Serious: Yes (Other)
  Sender: PFIZER
  Company Number: US-PFIZER INC-202101541489

PATIENT
  Age: 75 Year
  Sex: Female

DRUGS (1)
  1. PREMPRO [Suspect]
     Active Substance: ESTROGENS, CONJUGATED\MEDROXYPROGESTERONE ACETATE

REACTIONS (5)
  - Postmenopausal haemorrhage [Unknown]
  - Drug ineffective [Unknown]
  - Glucose tolerance impaired [Unknown]
  - Feeling abnormal [Unknown]
  - Product dispensing error [Unknown]
